FAERS Safety Report 17690536 (Version 1)
Quarter: 2020Q2

REPORT INFORMATION
  Report Type: Report from Study
  Country: DE (occurrence: DE)
  Receive Date: 20200421
  Receipt Date: 20200421
  Transmission Date: 20200714
  Serious: Yes (Death, Life-Threatening, Hospitalization, Other)
  Sender: FDA-Public Use
  Company Number: DE-BAXTER-2020BAX008545

PATIENT
  Age: 74 Year
  Sex: Male
  Weight: 89 kg

DRUGS (95)
  1. RITUXIMAB. [Suspect]
     Active Substance: RITUXIMAB
     Route: 041
     Dates: start: 20190211, end: 20190211
  2. VINCRISTINE [Suspect]
     Active Substance: VINCRISTINE
     Route: 041
     Dates: start: 20190314, end: 20190314
  3. PREDNISONE. [Suspect]
     Active Substance: PREDNISONE
     Indication: DIFFUSE LARGE B-CELL LYMPHOMA
     Route: 048
     Dates: start: 20190212, end: 20190216
  4. PREDNISONE. [Suspect]
     Active Substance: PREDNISONE
     Route: 048
     Dates: start: 20190226, end: 20190302
  5. RANITIDINE. [Concomitant]
     Active Substance: RANITIDINE
     Route: 042
     Dates: start: 20190313, end: 20190314
  6. DEXAMETHASONE. [Concomitant]
     Active Substance: DEXAMETHASONE
     Route: 048
     Dates: start: 20190313, end: 20190313
  7. DIMETINDENE [Concomitant]
     Active Substance: DIMETHINDENE
     Route: 042
     Dates: start: 20190622, end: 20190622
  8. PREGABALIN. [Concomitant]
     Active Substance: PREGABALIN
     Indication: CEREBROVASCULAR ACCIDENT
     Route: 048
     Dates: start: 20180101
  9. ALLOPURINOL. [Concomitant]
     Active Substance: ALLOPURINOL
     Indication: ARRHYTHMIA
  10. ATORVASTATIN [Concomitant]
     Active Substance: ATORVASTATIN
     Indication: CARDIAC DISORDER
     Route: 048
     Dates: start: 20180101
  11. CANDESARTAN. [Concomitant]
     Active Substance: CANDESARTAN
     Indication: HYPERTENSION
     Route: 048
     Dates: start: 20180101
  12. CALCITONIN [Concomitant]
     Active Substance: CALCITONIN
     Indication: HYPERCALCAEMIA
     Route: 042
     Dates: start: 20190211
  13. VINCRISTINE [Suspect]
     Active Substance: VINCRISTINE
     Indication: DIFFUSE LARGE B-CELL LYMPHOMA
     Dosage: START TIME: 04:30 TO STOP TIME: 04:35
     Route: 041
     Dates: start: 20190212, end: 20190212
  14. DEXAMETHASONE. [Concomitant]
     Active Substance: DEXAMETHASONE
     Route: 048
     Dates: start: 20190410, end: 20190410
  15. MESNA. [Concomitant]
     Active Substance: MESNA
     Route: 042
     Dates: start: 20190410, end: 20190410
  16. COTRIM FORTE [Concomitant]
     Active Substance: SULFAMETHOXAZOLE\TRIMETHOPRIM
     Indication: GENERAL PHYSICAL HEALTH DETERIORATION
     Route: 048
     Dates: start: 20180101
  17. DIMETINDENE [Concomitant]
     Active Substance: DIMETHINDENE
     Route: 042
     Dates: start: 20190313, end: 20190313
  18. PANTOZOL [Concomitant]
     Active Substance: PANTOPRAZOLE SODIUM
     Indication: GENERAL PHYSICAL HEALTH DETERIORATION
  19. LONQUEX [Concomitant]
     Active Substance: LIPEGFILGRASTIM
     Route: 042
     Dates: start: 20190424, end: 20190424
  20. ERYTHROZYTEN KONZENTRAT [Concomitant]
     Route: 042
     Dates: start: 20190425, end: 20190425
  21. ERYTHROZYTEN KONZENTRAT [Concomitant]
     Route: 042
     Dates: start: 20190507, end: 20190507
  22. LORAZEPAM. [Concomitant]
     Active Substance: LORAZEPAM
     Indication: GENERAL PHYSICAL HEALTH DETERIORATION
  23. COTRIM FORTE [Concomitant]
     Active Substance: SULFAMETHOXAZOLE\TRIMETHOPRIM
     Indication: PRODUCT USED FOR UNKNOWN INDICATION
     Route: 065
     Dates: start: 20180101
  24. ENDOXAN 1G [Suspect]
     Active Substance: CYCLOPHOSPHAMIDE
     Indication: DIFFUSE LARGE B-CELL LYMPHOMA
     Dosage: START TIME 15:00 TO STOP TIME 16:00
     Route: 041
     Dates: start: 20190212, end: 20190212
  25. ENDOXAN 1G [Suspect]
     Active Substance: CYCLOPHOSPHAMIDE
     Route: 041
     Dates: start: 20190410, end: 20190410
  26. ENDOXAN 1G [Suspect]
     Active Substance: CYCLOPHOSPHAMIDE
     Route: 041
     Dates: start: 20190425, end: 20190425
  27. DEXAMETHASONE. [Concomitant]
     Active Substance: DEXAMETHASONE
     Indication: GENERAL PHYSICAL HEALTH DETERIORATION
     Route: 048
     Dates: start: 20190226, end: 20190226
  28. MIRTAZAPINE. [Concomitant]
     Active Substance: MIRTAZAPINE
     Indication: PROPHYLAXIS
     Route: 048
     Dates: start: 20190201
  29. LONQUEX [Concomitant]
     Active Substance: LIPEGFILGRASTIM
     Indication: PROPHYLAXIS
     Route: 058
     Dates: start: 20190212, end: 20190212
  30. ZOMETA [Concomitant]
     Active Substance: ZOLEDRONIC ACID
     Route: 042
     Dates: start: 20190327, end: 20190327
  31. RITUXIMAB. [Suspect]
     Active Substance: RITUXIMAB
     Indication: DIFFUSE LARGE B-CELL LYMPHOMA
     Route: 041
     Dates: start: 20190225, end: 20190225
  32. RITUXIMAB. [Suspect]
     Active Substance: RITUXIMAB
     Route: 041
     Dates: start: 20190424, end: 20190424
  33. RITUXIMAB. [Suspect]
     Active Substance: RITUXIMAB
     Route: 041
     Dates: start: 20190622, end: 20190622
  34. VINCRISTINE [Suspect]
     Active Substance: VINCRISTINE
     Route: 041
     Dates: start: 20190226, end: 20190226
  35. VINCRISTINE [Suspect]
     Active Substance: VINCRISTINE
     Route: 041
     Dates: start: 20190425, end: 20190425
  36. VINCRISTINE [Suspect]
     Active Substance: VINCRISTINE
     Route: 041
     Dates: start: 20190410, end: 20190410
  37. PREDNISONE. [Suspect]
     Active Substance: PREDNISONE
     Route: 048
     Dates: start: 20190410, end: 20190414
  38. PREDNISONE. [Suspect]
     Active Substance: PREDNISONE
     Route: 048
     Dates: start: 20190425, end: 20190429
  39. L- THYROXIN [Concomitant]
     Indication: GOITRE
     Dosage: 50 OT
     Route: 048
     Dates: start: 20180101
  40. RANITIDINE. [Concomitant]
     Active Substance: RANITIDINE
     Route: 042
     Dates: start: 20190408, end: 20190410
  41. DEXAMETHASONE. [Concomitant]
     Active Substance: DEXAMETHASONE
     Route: 048
     Dates: start: 20190425, end: 20190425
  42. PARACETAMOL [Concomitant]
     Active Substance: ACETAMINOPHEN
     Route: 042
     Dates: start: 20190408, end: 20190408
  43. PARACETAMOL [Concomitant]
     Active Substance: ACETAMINOPHEN
     Route: 048
     Dates: start: 20190622, end: 20190622
  44. DIMETINDENE [Concomitant]
     Active Substance: DIMETHINDENE
     Route: 042
     Dates: start: 20190408, end: 20190408
  45. DIMETINDENE [Concomitant]
     Active Substance: DIMETHINDENE
     Route: 042
     Dates: start: 20190424, end: 20190424
  46. LORAZEPAM. [Concomitant]
     Active Substance: LORAZEPAM
     Indication: PROPHYLAXIS
     Route: 048
     Dates: start: 20190211
  47. L-THYROXIN [Concomitant]
     Active Substance: LEVOTHYROXINE SODIUM
     Indication: GOITRE
     Route: 065
     Dates: start: 20180101
  48. DOXIL [Suspect]
     Active Substance: DOXORUBICIN HYDROCHLORIDE
     Route: 041
     Dates: start: 20190226, end: 20190226
  49. DOXIL [Suspect]
     Active Substance: DOXORUBICIN HYDROCHLORIDE
     Dosage: DOSE: 77.2 UNIT NOT REPORTED
     Route: 041
     Dates: start: 20190410, end: 20190410
  50. ENDOXAN 1G [Suspect]
     Active Substance: CYCLOPHOSPHAMIDE
     Route: 041
     Dates: start: 20190226, end: 20190226
  51. RANITIDINE. [Concomitant]
     Active Substance: RANITIDINE
     Route: 042
     Dates: start: 20190424, end: 20190425
  52. GRANISETRON [Concomitant]
     Active Substance: GRANISETRON
     Route: 048
     Dates: start: 20190313, end: 20190313
  53. GRANISETRON [Concomitant]
     Active Substance: GRANISETRON
     Route: 048
     Dates: start: 20190425, end: 20190425
  54. DEXAMETHASONE. [Concomitant]
     Active Substance: DEXAMETHASONE
     Indication: PROPHYLAXIS
     Route: 048
     Dates: start: 20190211, end: 20190211
  55. ACETYLSALICYLIC ACID [Concomitant]
     Active Substance: ASPIRIN
     Indication: CEREBROVASCULAR ACCIDENT
     Route: 048
     Dates: start: 20180101
  56. ALLOPURINOL. [Concomitant]
     Active Substance: ALLOPURINOL
     Indication: CARDIAC DISORDER
     Route: 048
     Dates: start: 20180101
  57. PALLADON [Concomitant]
     Active Substance: HYDROMORPHONE
     Indication: PROPHYLAXIS
     Route: 048
     Dates: start: 20180101
  58. PANTOZOL [Concomitant]
     Active Substance: PANTOPRAZOLE SODIUM
     Indication: PROPHYLAXIS
     Route: 048
     Dates: start: 20180101
  59. LONQUEX [Concomitant]
     Active Substance: LIPEGFILGRASTIM
     Route: 065
     Dates: start: 20190308, end: 20190308
  60. DOXIL [Suspect]
     Active Substance: DOXORUBICIN HYDROCHLORIDE
     Route: 041
     Dates: start: 20190425, end: 20190425
  61. RITUXIMAB. [Suspect]
     Active Substance: RITUXIMAB
     Route: 041
     Dates: start: 20190313, end: 20190313
  62. PREDNISONE. [Suspect]
     Active Substance: PREDNISONE
     Route: 048
     Dates: start: 20190314, end: 20190318
  63. TORASEMIDE [Concomitant]
     Active Substance: TORSEMIDE
     Indication: ATRIAL FIBRILLATION
  64. GRANISETRON [Concomitant]
     Active Substance: GRANISETRON
     Indication: PROPHYLAXIS
     Route: 048
     Dates: start: 20190212, end: 20190212
  65. GRANISETRON [Concomitant]
     Active Substance: GRANISETRON
     Indication: GENERAL PHYSICAL HEALTH DETERIORATION
     Route: 048
     Dates: start: 20190226, end: 20190226
  66. MESNA. [Concomitant]
     Active Substance: MESNA
     Indication: GENERAL PHYSICAL HEALTH DETERIORATION
     Route: 042
     Dates: start: 20190212, end: 20190212
  67. MESNA. [Concomitant]
     Active Substance: MESNA
     Route: 042
     Dates: start: 20190313, end: 20190313
  68. MESNA. [Concomitant]
     Active Substance: MESNA
     Route: 042
     Dates: start: 20190425, end: 20190425
  69. PARACETAMOL [Concomitant]
     Active Substance: ACETAMINOPHEN
     Indication: PROPHYLAXIS
     Route: 048
     Dates: start: 20190313, end: 20190313
  70. NOVALGIN [Concomitant]
     Indication: PROPHYLAXIS
     Route: 048
     Dates: start: 20180101
  71. NOVALGIN [Concomitant]
     Indication: GENERAL PHYSICAL HEALTH DETERIORATION
  72. LONQUEX [Concomitant]
     Active Substance: LIPEGFILGRASTIM
     Route: 065
     Dates: start: 20190408, end: 20190408
  73. ZOMETA [Concomitant]
     Active Substance: ZOLEDRONIC ACID
     Indication: HYPERKALAEMIA
     Route: 042
     Dates: start: 20190205
  74. ZOMETA [Concomitant]
     Active Substance: ZOLEDRONIC ACID
     Indication: HYPERCALCAEMIA
     Route: 042
     Dates: start: 20190426, end: 20190426
  75. SIMVASTATIN. [Concomitant]
     Active Substance: SIMVASTATIN
     Indication: PRODUCT USED FOR UNKNOWN INDICATION
     Route: 048
     Dates: start: 20190211
  76. DOXIL [Suspect]
     Active Substance: DOXORUBICIN HYDROCHLORIDE
     Route: 041
     Dates: start: 20190314, end: 20190314
  77. ENDOXAN 1G [Suspect]
     Active Substance: CYCLOPHOSPHAMIDE
     Route: 041
     Dates: start: 20190314, end: 20190314
  78. RITUXIMAB. [Suspect]
     Active Substance: RITUXIMAB
     Route: 041
     Dates: start: 20190408, end: 20190408
  79. RANITIDINE. [Concomitant]
     Active Substance: RANITIDINE
     Indication: PROPHYLAXIS
     Route: 042
     Dates: start: 20190212, end: 20190212
  80. RANITIDINE. [Concomitant]
     Active Substance: RANITIDINE
     Route: 042
     Dates: start: 20190225, end: 20190226
  81. MESNA. [Concomitant]
     Active Substance: MESNA
     Indication: PROPHYLAXIS
     Route: 042
     Dates: start: 20190226, end: 20190226
  82. MIRTAZAPINE. [Concomitant]
     Active Substance: MIRTAZAPINE
     Indication: GENERAL PHYSICAL HEALTH DETERIORATION
  83. LONQUEX [Concomitant]
     Active Substance: LIPEGFILGRASTIM
     Indication: GENERAL PHYSICAL HEALTH DETERIORATION
     Route: 065
     Dates: start: 20190225, end: 20190225
  84. ZOMETA [Concomitant]
     Active Substance: ZOLEDRONIC ACID
     Route: 042
     Dates: start: 20190211
  85. ERYTHROZYTEN KONZENTRAT [Concomitant]
     Route: 042
     Dates: start: 20190302, end: 20190302
  86. ASPIRIN. [Concomitant]
     Active Substance: ASPIRIN
     Indication: CEREBROVASCULAR ACCIDENT
     Route: 048
     Dates: start: 20180101
  87. DOXIL [Suspect]
     Active Substance: DOXORUBICIN HYDROCHLORIDE
     Indication: DIFFUSE LARGE B-CELL LYMPHOMA
     Route: 041
     Dates: start: 20190212, end: 20190212
  88. TORASEMIDE [Concomitant]
     Active Substance: TORSEMIDE
     Indication: CARDIAC DISORDER
     Route: 048
     Dates: start: 20180110
  89. RANITIDINE. [Concomitant]
     Active Substance: RANITIDINE
     Route: 042
     Dates: start: 20190622, end: 20190622
  90. DIMETINDENE [Concomitant]
     Active Substance: DIMETHINDENE
     Indication: PROPHYLAXIS
     Route: 042
     Dates: start: 20190225, end: 20190225
  91. PALLADON [Concomitant]
     Active Substance: HYDROMORPHONE
     Indication: GENERAL PHYSICAL HEALTH DETERIORATION
  92. ATORVASTATIN [Concomitant]
     Active Substance: ATORVASTATIN
     Indication: ATRIAL FIBRILLATION
  93. ERYTHROZYTEN KONZENTRAT [Concomitant]
     Indication: PANCYTOPENIA
     Route: 042
     Dates: start: 20190308
  94. ERYTHROZYTEN KONZENTRAT [Concomitant]
     Route: 042
     Dates: start: 20190312, end: 20190312
  95. FRESUBIN [Concomitant]
     Active Substance: AMINO ACIDS\DEXTROSE\ELECTROLYTES NOS\SOYBEAN OIL\VITAMINS
     Indication: GENERAL PHYSICAL HEALTH DETERIORATION
     Dosage: DRINK
     Route: 048
     Dates: start: 20180101

REACTIONS (18)
  - Pneumonia [Fatal]
  - Muscular weakness [Not Recovered/Not Resolved]
  - Scapula fracture [Not Recovered/Not Resolved]
  - Thrombocytopenia [Not Recovered/Not Resolved]
  - Malignant neoplasm progression [Fatal]
  - Metastases to pelvis [Unknown]
  - Pancytopenia [Recovered/Resolved]
  - Thrombosis [Not Recovered/Not Resolved]
  - Acetabulum fracture [Not Recovered/Not Resolved]
  - Oedema peripheral [Not Recovered/Not Resolved]
  - Lymphadenopathy [Unknown]
  - Metastases to soft tissue [Unknown]
  - Metastases to bone [Unknown]
  - Infection [Not Recovered/Not Resolved]
  - Diffuse large B-cell lymphoma [Fatal]
  - Thoracic vertebral fracture [Not Recovered/Not Resolved]
  - Metastases to spine [Unknown]
  - Blood lactate dehydrogenase increased [Unknown]

NARRATIVE: CASE EVENT DATE: 20190225
